FAERS Safety Report 7919091-6 (Version None)
Quarter: 2011Q4

REPORT INFORMATION
  Report Type: 
  Country: None (occurrence: None)
  Receive Date: 20111116
  Receipt Date: 20111107
  Transmission Date: 20120403
  Serious: Yes (Disabling)
  Sender: FDA-Public Use
  Company Number: CA-ASTRAZENECA-2011SE67331

PATIENT
  Age: 74 Year
  Sex: Male
  Weight: 95 kg

DRUGS (9)
  1. CRESTOR [Suspect]
     Route: 048
  2. MAXIDEX [Concomitant]
     Route: 047
  3. VITAMIN B-12 [Concomitant]
  4. AVANDIA [Concomitant]
  5. TEVA-METOPROL [Concomitant]
  6. LITHANE [Concomitant]
  7. VIGAMOX [Concomitant]
     Route: 047
  8. PERINDOPRIL ERBUMINE [Concomitant]
  9. CYCLOMEN [Concomitant]

REACTIONS (3)
  - TREMOR [None]
  - MUSCLE SPASMS [None]
  - PAIN IN EXTREMITY [None]
